FAERS Safety Report 4319980-8 (Version None)
Quarter: 2004Q1

REPORT INFORMATION
  Report Type: 
  Country: None (occurrence: None)
  Receive Date: 20040315
  Receipt Date: 20040108
  Transmission Date: 20041129
  Serious: No
  Sender: FDA-Public Use
  Company Number: 2004193652US

PATIENT

DRUGS (2)
  1. BEXTRA [Suspect]
     Indication: PAIN
     Dosage: 10 MG
     Dates: start: 20040101, end: 20040107
  2. KLONOPIN [Concomitant]

REACTIONS (3)
  - DIZZINESS [None]
  - FEELING ABNORMAL [None]
  - HYPERHIDROSIS [None]
